FAERS Safety Report 9908053 (Version 2)
Quarter: 2014Q2

REPORT INFORMATION
  Report Type: Report from Study
  Country: US (occurrence: US)
  Receive Date: 20140219
  Receipt Date: 20140423
  Transmission Date: 20141212
  Serious: Yes (Death)
  Sender: FDA-Public Use
  Company Number: US-ROCHE-1328543

PATIENT
  Age: 52 Year
  Sex: Female
  Weight: 99.43 kg

DRUGS (9)
  1. AVASTIN [Suspect]
     Indication: COLON CANCER
     Dosage: 20/JAN/2012, 08/FEB/2012, RECEIVED AT SAME DOSE.
     Route: 065
     Dates: start: 20111220
  2. XELODA [Suspect]
     Indication: COLON CANCER
     Route: 065
  3. KYTRIL [Suspect]
     Indication: PRODUCT USED FOR UNKNOWN INDICATION
     Route: 065
  4. CAMPTOSAR [Concomitant]
     Indication: COLON CANCER
     Route: 065
  5. CAMPTOSAR [Concomitant]
     Route: 065
  6. 5-FU [Concomitant]
     Indication: COLON CANCER
     Dosage: 880
     Route: 065
  7. LEUCOVORIN [Concomitant]
     Indication: COLON CANCER
     Route: 065
  8. DECADRON [Concomitant]
     Dosage: 10
     Route: 065
  9. COMPAZINE [Concomitant]
     Dosage: 10
     Route: 048

REACTIONS (2)
  - Colon cancer [Fatal]
  - Metastases to liver [Fatal]
